FAERS Safety Report 23347919 (Version 3)
Quarter: 2024Q1

REPORT INFORMATION
  Report Type: Spontaneous
  Country: GB (occurrence: GB)
  Receive Date: 20231228
  Receipt Date: 20240222
  Transmission Date: 20240409
  Serious: Yes (Hospitalization, Other)
  Sender: FDA-Public Use
  Company Number: GB-FreseniusKabi-FK202321151

PATIENT
  Age: 85 Year
  Sex: Female
  Weight: 55 kg

DRUGS (6)
  1. SODIUM CHLORIDE [Suspect]
     Active Substance: SODIUM CHLORIDE
     Indication: Product used for unknown indication
     Dosage: SOLUTION FOR INFUSION;?STERIFLEX 152 (POTASSIUM CHLORIDE, SODIUM CHLORIDE 0.9%)
     Route: 042
  2. SODIUM CHLORIDE [Suspect]
     Active Substance: SODIUM CHLORIDE
     Dosage: STERIFLEX 152?ROUTE OF ADMIN. INTRAVENOUS (NOT OTHERWISE SPECIFIED) ( INT )
  3. POTASSIUM CHLORIDE [Suspect]
     Active Substance: POTASSIUM CHLORIDE
     Indication: Product used for unknown indication
     Dosage: 40 MMOL; STERIFLEX 152 (POTASSIUM CHLORIDE, SODIUM CHLORIDE 0.9%)
     Route: 042
  4. SEVOFLURANE [Concomitant]
     Active Substance: SEVOFLURANE
     Indication: Product used for unknown indication
  5. REMIFENTANIL [Concomitant]
     Active Substance: REMIFENTANIL
     Indication: Product used for unknown indication
  6. NOREPINEPHRINE [Concomitant]
     Active Substance: NOREPINEPHRINE
     Indication: Product used for unknown indication

REACTIONS (1)
  - Cardiac arrest [Recovered/Resolved with Sequelae]
